FAERS Safety Report 9434380 (Version 3)
Quarter: 2013Q3

REPORT INFORMATION
  Report Type: Spontaneous
  Country: JP (occurrence: JP)
  Receive Date: 20130801
  Receipt Date: 20130904
  Transmission Date: 20140515
  Serious: Yes (Death)
  Sender: FDA-Public Use
  Company Number: JP-JNJFOC-20130716260

PATIENT
  Age: 60 Year
  Sex: Male
  Weight: 65 kg

DRUGS (11)
  1. REMICADE [Suspect]
     Indication: SECONDARY AMYLOIDOSIS
     Dosage: 3RD DOSE
     Route: 042
     Dates: start: 20120227
  2. REMICADE [Suspect]
     Indication: SECONDARY AMYLOIDOSIS
     Dosage: 1ST DOSE
     Route: 042
     Dates: start: 20120119
  3. ENBREL [Suspect]
     Indication: SECONDARY AMYLOIDOSIS
     Route: 058
     Dates: start: 201108, end: 20120114
  4. ACTEMRA [Suspect]
     Indication: SECONDARY AMYLOIDOSIS
     Route: 042
     Dates: start: 20120406, end: 20130427
  5. IMURAN [Suspect]
     Indication: SECONDARY AMYLOIDOSIS
     Route: 048
     Dates: start: 20110709, end: 20130427
  6. STEROIDS NOS [Suspect]
     Indication: SECONDARY AMYLOIDOSIS
     Route: 048
     Dates: start: 20110709, end: 20130407
  7. LANTUS [Concomitant]
     Indication: DIABETES MELLITUS
     Route: 058
     Dates: start: 20110709, end: 20120126
  8. GLUFAST [Concomitant]
     Indication: DIABETES MELLITUS
     Route: 048
     Dates: start: 20110707, end: 20130331
  9. GLUFAST [Concomitant]
     Indication: DIABETES MELLITUS
     Route: 048
     Dates: start: 20110707, end: 20130331
  10. TAKEPRON [Concomitant]
     Indication: GASTROOESOPHAGEAL REFLUX DISEASE
     Route: 048
     Dates: start: 20110709, end: 20130427
  11. BONALON [Concomitant]
     Indication: OSTEOPOROSIS
     Route: 048
     Dates: start: 20110709, end: 20130427

REACTIONS (5)
  - Brain neoplasm [Fatal]
  - Renal failure [Unknown]
  - Amyloidosis [Unknown]
  - Cardiac failure [Unknown]
  - Drug ineffective for unapproved indication [Unknown]
